FAERS Safety Report 12710731 (Version 6)
Quarter: 2016Q4

REPORT INFORMATION
  Report Type: Spontaneous
  Country: US (occurrence: US)
  Receive Date: 20160902
  Receipt Date: 20161107
  Transmission Date: 20170207
  Serious: No
  Sender: FDA-Public Use
  Company Number: US-PFIZER INC-2016413933

PATIENT
  Age: 60 Year
  Sex: Female

DRUGS (5)
  1. MELOXICAM. [Concomitant]
     Active Substance: MELOXICAM
     Dosage: UNK, (TAKES MELOXICAM AT NIGHT)
  2. LYRICA [Suspect]
     Active Substance: PREGABALIN
     Dosage: UNK, 3X/DAY
     Route: 048
     Dates: start: 2016
  3. LYRICA [Suspect]
     Active Substance: PREGABALIN
     Indication: FIBROMYALGIA
     Dosage: 75 MG, 3X/DAY
     Route: 048
     Dates: start: 20160614, end: 20160830
  4. LYRICA [Suspect]
     Active Substance: PREGABALIN
     Dosage: UNK, 2X/DAY
     Route: 048
     Dates: start: 2016
  5. LOSARTAN-HCTZ [Suspect]
     Active Substance: HYDROCHLOROTHIAZIDE\LOSARTAN
     Indication: HYPERTENSION
     Dosage: UNK, 1X/DAY (100 MG OF LOSARTAN POTASSIUM, 25 MG OF HYDROCHLOROTHIAZIDE)
     Route: 048

REACTIONS (7)
  - Swelling [Not Recovered/Not Resolved]
  - Condition aggravated [Unknown]
  - Peripheral swelling [Recovered/Resolved]
  - Off label use [Unknown]
  - Drug ineffective [Unknown]
  - Musculoskeletal disorder [Unknown]
  - Joint swelling [Recovered/Resolved]
